FAERS Safety Report 8547273-1 (Version None)
Quarter: 2012Q3

REPORT INFORMATION
  Report Type: 
  Country: None (occurrence: None)
  Receive Date: 20120727
  Receipt Date: 20120717
  Transmission Date: 20120928
  Serious: No
  Sender: FDA-Public Use
  Company Number: US-ASTRAZENECA-2012SE50554

PATIENT

DRUGS (2)
  1. PLAVIX [Interacting]
  2. NEXIUM [Suspect]
     Route: 048

REACTIONS (1)
  - DRUG INTERACTION [None]
